FAERS Safety Report 5593185-5 (Version None)
Quarter: 2008Q1

REPORT INFORMATION
  Report Type: 
  Country: None (occurrence: None)
  Receive Date: 20080115
  Receipt Date: 20080115
  Transmission Date: 20080703
  Serious: Yes (Hospitalization)
  Sender: FDA-Public Use
  Company Number: None

PATIENT
  Age: 65 Year
  Sex: Female
  Weight: 93.8 kg

DRUGS (7)
  1. ZOMETA [Suspect]
     Indication: OSTEOPOROSIS
     Dosage: 4MG Q 90 DAYS IV
     Route: 042
     Dates: start: 20070103
  2. ZOMETA [Suspect]
     Indication: OSTEOPOROSIS
     Dosage: 4MG Q 90 DAYS IV
     Route: 042
     Dates: start: 20070327
  3. ZOMETA [Suspect]
     Indication: OSTEOPOROSIS
     Dosage: 4MG Q 90 DAYS IV
     Route: 042
     Dates: start: 20070629
  4. ZOMETA [Suspect]
     Indication: OSTEOPOROSIS
     Dosage: 4MG Q 90 DAYS IV
     Route: 042
     Dates: start: 20071004
  5. DEXAMETHASONE TAB [Concomitant]
  6. ZANTAC [Concomitant]
  7. DILANTIN [Concomitant]

REACTIONS (3)
  - BRAIN OEDEMA [None]
  - GRAND MAL CONVULSION [None]
  - NEOPLASM PROGRESSION [None]
